FAERS Safety Report 17275256 (Version 1)
Quarter: 2020Q1

REPORT INFORMATION
  Report Type: Spontaneous
  Country: US (occurrence: US)
  Receive Date: 20200116
  Receipt Date: 20200116
  Transmission Date: 20200409
  Serious: No
  Sender: FDA-Public Use
  Company Number: US-GLAXOSMITHKLINE-US2020AMR003651

PATIENT
  Age: 65 Year
  Sex: Female

DRUGS (1)
  1. ALBUTEROL SULFATE INHALATION POWDER [Suspect]
     Active Substance: ALBUTEROL SULFATE
     Indication: PRODUCT USED FOR UNKNOWN INDICATION
     Dosage: UNK
     Route: 065

REACTIONS (8)
  - Wrong technique in product usage process [Unknown]
  - Nasal dryness [Unknown]
  - Product storage error [Unknown]
  - Wheezing [Unknown]
  - Weight increased [Unknown]
  - Eye disorder [Unknown]
  - Nasal congestion [Unknown]
  - Wrong technique in device usage process [Unknown]
